FAERS Safety Report 7911632-8 (Version None)
Quarter: 2011Q4

REPORT INFORMATION
  Report Type: 
  Country: None (occurrence: None)
  Receive Date: 20111114
  Receipt Date: 20111114
  Transmission Date: 20120403
  Serious: Yes (Other)
  Sender: FDA-Public Use
  Company Number: None

PATIENT
  Age: 69 Year
  Sex: Female
  Weight: 67.131 kg

DRUGS (1)
  1. FLUTICASONE PROPIONATE [Suspect]
     Indication: RHINITIS
     Dosage: ONE SPRAY
     Route: 045
     Dates: start: 20111014, end: 20111102

REACTIONS (3)
  - AGEUSIA [None]
  - EAR DISCOMFORT [None]
  - ANOSMIA [None]
